FAERS Safety Report 5948607-4 (Version None)
Quarter: 2008Q4

REPORT INFORMATION
  Report Type: 
  Country: None (occurrence: None)
  Receive Date: 20081111
  Receipt Date: 20081031
  Transmission Date: 20090506
  Serious: Yes (Hospitalization, Other)
  Sender: FDA-Public Use
  Company Number: US-MERCK-0710USA00574

PATIENT
  Age: 37 Year
  Sex: Female
  Weight: 48 kg

DRUGS (3)
  1. FOSAMAX [Suspect]
     Indication: OSTEOPOROSIS
     Route: 048
     Dates: start: 19951101
  2. FOSAMAX [Suspect]
     Route: 048
     Dates: end: 20060401
  3. AMITRIPTYLINE HCL [Suspect]
     Route: 065

REACTIONS (30)
  - ANGINA UNSTABLE [None]
  - ANXIETY [None]
  - ARTHROPATHY [None]
  - DENTAL CARIES [None]
  - DEPRESSION [None]
  - DRY MOUTH [None]
  - DYSPHAGIA [None]
  - EOSINOPHILIA [None]
  - FOOT FRACTURE [None]
  - FUNGAL INFECTION [None]
  - GINGIVAL DISORDER [None]
  - IMPLANT SITE REACTION [None]
  - INFECTION [None]
  - LEUKOPENIA [None]
  - LIBIDO DECREASED [None]
  - MYOFASCIAL PAIN SYNDROME [None]
  - NARCOLEPSY [None]
  - OSTEOMYELITIS [None]
  - OSTEONECROSIS [None]
  - PAIN IN JAW [None]
  - PANIC ATTACK [None]
  - PYREXIA [None]
  - RENAL CYST [None]
  - ROAD TRAFFIC ACCIDENT [None]
  - SLEEP APNOEA SYNDROME [None]
  - SPINAL OSTEOARTHRITIS [None]
  - TINEA PEDIS [None]
  - TRIGEMINAL NERVE DISORDER [None]
  - WEIGHT DECREASED [None]
  - WHIPLASH INJURY [None]
